FAERS Safety Report 10006294 (Version 2)
Quarter: 2014Q1

REPORT INFORMATION
  Report Type: Report from Study
  Country: US (occurrence: US)
  Receive Date: 20140313
  Receipt Date: 20140313
  Transmission Date: 20141002
  Serious: Yes (Death, Other)
  Sender: FDA-Public Use
  Company Number: US-ASTRAZENECA-2013SE13087

PATIENT
  Age: 75 Year
  Sex: Female

DRUGS (7)
  1. NEXIUM [Suspect]
     Indication: GASTROOESOPHAGEAL REFLUX DISEASE
     Route: 048
     Dates: start: 2007
  2. NEXIUM [Suspect]
     Indication: GASTROOESOPHAGEAL REFLUX DISEASE
     Route: 048
     Dates: start: 2007
  3. NEXIUM [Suspect]
     Indication: HIATUS HERNIA
     Route: 048
     Dates: start: 2007
  4. TOPROL XL [Suspect]
     Indication: HYPERTENSION
     Route: 048
     Dates: start: 1979
  5. PRILOSEC [Suspect]
     Route: 048
  6. PRILOSEC [Suspect]
     Dosage: GENERIC
     Route: 048
  7. PRILOSEC OTC [Suspect]
     Route: 048

REACTIONS (12)
  - Neoplasm malignant [Fatal]
  - Cataract [Unknown]
  - Malaise [Unknown]
  - Hiatus hernia [Unknown]
  - Abdominal discomfort [Unknown]
  - Hypertension [Unknown]
  - Food intolerance [Unknown]
  - Lactose intolerance [Unknown]
  - Gastric ulcer [Unknown]
  - Gastritis [Unknown]
  - Abdominal distension [Unknown]
  - Drug ineffective [Unknown]
